FAERS Safety Report 15205661 (Version 1)
Quarter: 2018Q3

REPORT INFORMATION
  Report Type: Spontaneous
  Country: US (occurrence: US)
  Receive Date: 20180727
  Receipt Date: 20180727
  Transmission Date: 20181010
  Serious: No
  Sender: FDA-Public Use
  Company Number: US-SHIRE-US201828057

PATIENT
  Age: 80 Year

DRUGS (1)
  1. NATPARA (PARATHYROID HORMONE) [Suspect]
     Active Substance: PARATHYROID HORMONE
     Indication: PRODUCT USED FOR UNKNOWN INDICATION
     Dosage: 75 ?G, UNKNOWN
     Route: 065

REACTIONS (7)
  - Feeling abnormal [Unknown]
  - Headache [Unknown]
  - Tachycardia [Unknown]
  - Stupor [Unknown]
  - Muscle spasms [Unknown]
  - Disturbance in attention [Unknown]
  - Paraesthesia [Unknown]

NARRATIVE: CASE EVENT DATE: 20180716
